FAERS Safety Report 12270321 (Version 1)
Quarter: 2016Q2

REPORT INFORMATION
  Report Type: Spontaneous
  Country: US (occurrence: None)
  Receive Date: 20160414
  Receipt Date: 20160414
  Transmission Date: 20160815
  Serious: Yes (Life-Threatening, Disabling)
  Sender: FDA-Public Use
  Company Number: None

PATIENT
  Age: 74 Year
  Sex: Male
  Weight: 124 kg

DRUGS (1)
  1. WARFARIN, 5 MG [Suspect]
     Active Substance: WARFARIN
     Indication: DEEP VEIN THROMBOSIS
     Route: 048

REACTIONS (3)
  - Cerebral haemorrhage [None]
  - Cerebrovascular accident [None]
  - Deep vein thrombosis [None]

NARRATIVE: CASE EVENT DATE: 20140310
